FAERS Safety Report 6693452-8 (Version None)
Quarter: 2010Q2

REPORT INFORMATION
  Report Type: 
  Country: None (occurrence: None)
  Receive Date: 20100423
  Receipt Date: 20100413
  Transmission Date: 20101027
  Serious: Yes (Other)
  Sender: FDA-Public Use
  Company Number: US-BIOGENIDEC-2009BI035156

PATIENT
  Age: 58 Year
  Sex: Female

DRUGS (3)
  1. AVONEX [Suspect]
     Indication: MULTIPLE SCLEROSIS
     Route: 030
     Dates: start: 20020913, end: 20040101
  2. AVONEX [Suspect]
     Route: 030
     Dates: start: 20090101
  3. AVONEX [Suspect]
     Route: 030
     Dates: start: 20100410

REACTIONS (3)
  - BREAST CANCER STAGE II [None]
  - DIABETES MELLITUS [None]
  - PAIN [None]
